FAERS Safety Report 13550116 (Version 1)
Quarter: 2017Q2

REPORT INFORMATION
  Report Type: Spontaneous
  Country: JP (occurrence: JP)
  Receive Date: 20170516
  Receipt Date: 20170516
  Transmission Date: 20170830
  Serious: Yes (Other)
  Sender: FDA-Public Use
  Company Number: JP-MYLANLABS-2017M1028793

PATIENT

DRUGS (5)
  1. CETUXIMAB. [Suspect]
     Active Substance: CETUXIMAB
     Indication: LIP AND/OR ORAL CAVITY CANCER
     Dosage: 400MG/M2; FOLLOWED BY 5COURSES OF 250 MG/M2 INFUSION (DAY 9, 15, 28, 35, 44)
     Route: 065
  2. CETUXIMAB. [Suspect]
     Active Substance: CETUXIMAB
     Dosage: 5COURSES OF 250 MG/M2 INFUSION (DAY 9, 15, 28, 35, 44)
     Route: 065
  3. FLUOROURACIL. [Suspect]
     Active Substance: FLUOROURACIL
     Indication: LIP AND/OR ORAL CAVITY CANCER
     Dosage: 750 MG/M2; DAYS 1-5; EVERY 3 WEEKS
     Route: 065
  4. CISPLATIN. [Suspect]
     Active Substance: CISPLATIN
     Indication: LIP AND/OR ORAL CAVITY CANCER
     Dosage: 75 MG/M2, DAYS 1; EVERY 3 WEEKS
     Route: 065
  5. DOCETAXEL. [Suspect]
     Active Substance: DOCETAXEL
     Indication: LIP AND/OR ORAL CAVITY CANCER
     Dosage: 75 MG/M2, DAY1; EVERY 3 WEEKS
     Route: 065

REACTIONS (4)
  - Pain [Unknown]
  - Interstitial lung disease [Recovered/Resolved]
  - Injury [Unknown]
  - Dysphagia [Unknown]
